FAERS Safety Report 10983915 (Version 2)
Quarter: 2015Q2

REPORT INFORMATION
  Report Type: Spontaneous
  Country: US (occurrence: US)
  Receive Date: 20150403
  Receipt Date: 20150608
  Transmission Date: 20150821
  Serious: Yes (Life-Threatening, Hospitalization)
  Sender: FDA-Public Use
  Company Number: US-JNJFOC-20150402243

PATIENT
  Age: 73 Year
  Sex: Female
  Weight: 64 kg

DRUGS (7)
  1. LEVOTHROID [Concomitant]
     Active Substance: LEVOTHYROXINE SODIUM
  2. IMBRUVICA [Suspect]
     Active Substance: IBRUTINIB
     Indication: CHRONIC LYMPHOCYTIC LEUKAEMIA
     Route: 048
     Dates: start: 20141006, end: 20141205
  3. LOSARTAN [Concomitant]
     Active Substance: LOSARTAN
     Indication: HYPERTENSION
  4. LOSARTAN POTASSIUM + HYDROCHLOROTHIAZIDE [Concomitant]
     Active Substance: HYDROCHLOROTHIAZIDE\LOSARTAN POTASSIUM
     Indication: HYPERTENSION
     Dosage: 100-25
     Dates: end: 201412
  5. ACYCLOVIR. [Suspect]
     Active Substance: ACYCLOVIR
     Indication: PRODUCT USED FOR UNKNOWN INDICATION
     Dates: end: 201412
  6. ATORVASTATIN [Concomitant]
     Active Substance: ATORVASTATIN
     Dates: end: 201412
  7. ASPIRIN. [Concomitant]
     Active Substance: ASPIRIN

REACTIONS (9)
  - Liver function test abnormal [Recovered/Resolved]
  - Platelet count increased [Unknown]
  - Blood creatinine increased [Recovered/Resolved]
  - Hepatitis [Recovered/Resolved]
  - White blood cell count increased [Unknown]
  - Acute kidney injury [Recovered/Resolved]
  - Hepatic necrosis [Recovered/Resolved]
  - Lymphocyte count increased [Unknown]
  - Renal cyst [Unknown]

NARRATIVE: CASE EVENT DATE: 201412
